FAERS Safety Report 7252549-4 (Version None)
Quarter: 2011Q1

REPORT INFORMATION
  Report Type: 
  Country: None (occurrence: None)
  Receive Date: 20110129
  Receipt Date: 20100113
  Transmission Date: 20110831
  Serious: No
  Sender: FDA-Public Use
  Company Number: US-ABBOTT-10P-163-0620011-00

PATIENT
  Sex: Male
  Weight: 118.04 kg

DRUGS (6)
  1. HUMIRA [Suspect]
     Route: 058
     Dates: start: 20091201
  2. NAPROXEN [Concomitant]
     Indication: PRODUCT USED FOR UNKNOWN INDICATION
  3. M.V.I. [Concomitant]
     Indication: PRODUCT USED FOR UNKNOWN INDICATION
  4. METHOTREXATE [Suspect]
     Indication: PRODUCT USED FOR UNKNOWN INDICATION
     Dates: end: 20090107
  5. HUMIRA [Suspect]
     Indication: RHEUMATOID ARTHRITIS
     Route: 058
     Dates: start: 20091001, end: 20091201
  6. FOLIC ACID [Concomitant]
     Indication: PRODUCT USED FOR UNKNOWN INDICATION

REACTIONS (5)
  - NAUSEA [None]
  - DRUG EFFECT DECREASED [None]
  - FALL [None]
  - VISUAL ACUITY REDUCED [None]
  - DIZZINESS [None]
